FAERS Safety Report 8217551-4 (Version None)
Quarter: 2012Q1

REPORT INFORMATION
  Report Type: 
  Country: None (occurrence: None)
  Receive Date: 20120305
  Receipt Date: 20111027
  Transmission Date: 20120608
  Serious: No
  Sender: FDA-Public Use
  Company Number: 1000025076

PATIENT
  Age: 76 Year
  Sex: Male

DRUGS (8)
  1. DALIRESP [Suspect]
     Indication: CHRONIC OBSTRUCTIVE PULMONARY DISEASE
     Dosage: 500 MCG (500 MCG, 1 IN 1 D), ORAL
     Route: 048
     Dates: start: 20111008, end: 20111010
  2. COMBIVENT (COMBIVENT) (COMBIVENT) [Concomitant]
  3. TAMSULOSIN (TAMSULOSIN) (TAMSULOSIN) [Concomitant]
  4. AZITHROMYCIN [Concomitant]
  5. BUDESONIDE [Concomitant]
  6. EXCEDRIN MIGRAINE (THOMAPYRIN N) (THOMAPYRIN N) [Concomitant]
  7. BROVANA (ARFORMOTEROL TARTRATE) (ARFORMOTEROL TARTRATE) [Concomitant]
  8. VITAMIN D (VITAMIN D) (VITAMIN D) [Concomitant]

REACTIONS (3)
  - CHEST PAIN [None]
  - BACK PAIN [None]
  - PAIN IN EXTREMITY [None]
